FAERS Safety Report 18618486 (Version 1)
Quarter: 2020Q4

REPORT INFORMATION
  Report Type: Spontaneous
  Country: DE (occurrence: DE)
  Receive Date: 20201215
  Receipt Date: 20201215
  Transmission Date: 20210114
  Serious: Yes (Other)
  Sender: FDA-Public Use
  Company Number: DE-MYLANLABS-2020M1101252

PATIENT
  Age: 24 Year
  Sex: Female
  Weight: 60 kg

DRUGS (3)
  1. VENLAFAXINE [Suspect]
     Active Substance: VENLAFAXINE HYDROCHLORIDE
     Indication: JOB DISSATISFACTION
  2. THYROXIN [Concomitant]
     Active Substance: LEVOTHYROXINE
     Indication: HYPOTHYROIDISM
     Dosage: 75 MICROGRAM
  3. VENLAFAXINE [Suspect]
     Active Substance: VENLAFAXINE HYDROCHLORIDE
     Indication: DEPRESSED MOOD
     Dosage: VENLAFAXIN 75MG ONE TABLET PER DAY SUICIDE ATTEMPT WITH VENLAFAXIN OVERDOSE (AMOUNT UNKNOWN)
     Route: 048
     Dates: start: 20100901, end: 20200301

REACTIONS (2)
  - Suicide attempt [Recovering/Resolving]
  - Intentional overdose [Unknown]

NARRATIVE: CASE EVENT DATE: 20151220
